FAERS Safety Report 9631461 (Version 1)
Quarter: 2013Q4

REPORT INFORMATION
  Report Type: Spontaneous
  Country: US (occurrence: None)
  Receive Date: 20131017
  Receipt Date: 20131017
  Transmission Date: 20140711
  Serious: Yes (Other)
  Sender: FDA-Public Use
  Company Number: None

PATIENT
  Sex: Female
  Weight: 61.24 kg

DRUGS (2)
  1. TIZANIDINE [Suspect]
     Indication: FIBROMYALGIA
     Dosage: 1-4 TABLETS, AT BEDTIME, PO
     Route: 048
     Dates: start: 20130126, end: 20130127
  2. TIZANIDINE [Suspect]
     Dosage: 1-4 TABLETS, AT BEDTIME, PO
     Route: 048
     Dates: start: 20130126, end: 20130127

REACTIONS (4)
  - Asthenia [None]
  - Movement disorder [None]
  - Speech disorder [None]
  - Paralysis [None]
